FAERS Safety Report 10196542 (Version 1)
Quarter: 2014Q2

REPORT INFORMATION
  Report Type: Spontaneous
  Country: CN (occurrence: CN)
  Receive Date: 20140527
  Receipt Date: 20140527
  Transmission Date: 20141212
  Serious: Yes (Other)
  Sender: FDA-Public Use
  Company Number: CN-SA-2014SA062582

PATIENT
  Age: 59 Year
  Sex: Male

DRUGS (3)
  1. AMARYL [Suspect]
     Indication: HYPERGLYCAEMIA
     Route: 048
     Dates: start: 20131211, end: 20131220
  2. ACARBOSE [Suspect]
     Indication: HYPERGLYCAEMIA
     Route: 048
  3. PIOGLITAZONE HYDROCHLORIDE [Concomitant]

REACTIONS (7)
  - Hepatic function abnormal [Not Recovered/Not Resolved]
  - Alanine aminotransferase increased [Not Recovered/Not Resolved]
  - Aspartate aminotransferase increased [Not Recovered/Not Resolved]
  - Blood creatine phosphokinase increased [Not Recovered/Not Resolved]
  - Blood lactate dehydrogenase increased [Unknown]
  - Albumin urine present [Unknown]
  - Chromaturia [Unknown]
